FAERS Safety Report 15396080 (Version 1)
Quarter: 2018Q3

REPORT INFORMATION
  Report Type: Spontaneous
  Country: US (occurrence: US)
  Receive Date: 20180918
  Receipt Date: 20180918
  Transmission Date: 20181010
  Serious: No
  Sender: FDA-Public Use
  Company Number: US-ASTRAZENECA-2018SF08844

PATIENT
  Age: 1027 Month
  Sex: Female
  Weight: 72.6 kg

DRUGS (2)
  1. SYMBICORT [Suspect]
     Active Substance: BUDESONIDE\FORMOTEROL FUMARATE DIHYDRATE
     Indication: CHRONIC OBSTRUCTIVE PULMONARY DISEASE
     Dosage: 160/4.5 UG, TWO TIMES A DAY
     Route: 055
     Dates: start: 20180707
  2. SYMBICORT [Suspect]
     Active Substance: BUDESONIDE\FORMOTEROL FUMARATE DIHYDRATE
     Indication: CHRONIC OBSTRUCTIVE PULMONARY DISEASE
     Dosage: AT LEAST ONCE, IF NOT TWICE A DAY AND AS NEEDED AS REQUIRED
     Route: 055
     Dates: start: 201807

REACTIONS (4)
  - Device issue [Unknown]
  - Intentional product misuse [Unknown]
  - Drug dose omission [Unknown]
  - Dyspnoea [Unknown]

NARRATIVE: CASE EVENT DATE: 201807
